FAERS Safety Report 15741321 (Version 1)
Quarter: 2018Q4

REPORT INFORMATION
  Report Type: Spontaneous
  Country: PT (occurrence: PT)
  Receive Date: 20181219
  Receipt Date: 20181219
  Transmission Date: 20190205
  Serious: Yes (Other)
  Sender: FDA-Public Use
  Company Number: PT-ASTRAZENECA-2018SF63695

PATIENT
  Age: 18992 Day
  Sex: Male

DRUGS (1)
  1. FORXIGA [Suspect]
     Active Substance: DAPAGLIFLOZIN
     Indication: TYPE 2 DIABETES MELLITUS
     Dosage: 10.0MG UNKNOWN
     Route: 048
     Dates: start: 20171211

REACTIONS (3)
  - Pollakiuria [Unknown]
  - Lymphadenopathy [Unknown]
  - T-cell lymphoma [Unknown]

NARRATIVE: CASE EVENT DATE: 20181210
